FAERS Safety Report 10021518 (Version 1)
Quarter: 2014Q1

REPORT INFORMATION
  Report Type: Spontaneous
  Country: US (occurrence: None)
  Receive Date: 20140318
  Receipt Date: 20140318
  Transmission Date: 20141002
  Serious: Yes (Disabling, Other)
  Sender: FDA-Public Use
  Company Number: None

PATIENT
  Age: 57 Year
  Sex: Female
  Weight: 72.58 kg

DRUGS (1)
  1. LAMOTRIGINE [Suspect]
     Indication: CONVULSION
     Dosage: 1 PILL
     Route: 048

REACTIONS (9)
  - Overdose [None]
  - Underdose [None]
  - Drug level fluctuating [None]
  - Dysphemia [None]
  - Product substitution issue [None]
  - Product quality issue [None]
  - Convulsion [None]
  - Memory impairment [None]
  - Nervous system disorder [None]
